FAERS Safety Report 5906277-5 (Version None)
Quarter: 2008Q4

REPORT INFORMATION
  Report Type: 
  Country: None (occurrence: None)
  Receive Date: 20081002
  Receipt Date: 20080922
  Transmission Date: 20090506
  Serious: Yes (Death)
  Sender: FDA-Public Use
  Company Number: JP-PFIZER INC-2008082408

PATIENT
  Sex: Female
  Weight: 45 kg

DRUGS (12)
  1. CAMPTOSAR [Suspect]
     Indication: GASTRIC CANCER
     Route: 042
     Dates: start: 20080520, end: 20080520
  2. CAMPTOSAR [Suspect]
     Route: 042
     Dates: start: 20080617
  3. CAMPTOSAR [Suspect]
     Route: 042
     Dates: start: 20080701
  4. CAMPTOSAR [Suspect]
     Route: 042
     Dates: start: 20080717
  5. CAMPTOSAR [Suspect]
     Route: 042
     Dates: start: 20080813
  6. CAMPTOSAR [Suspect]
     Route: 042
     Dates: start: 20080902, end: 20080902
  7. CISPLATIN [Suspect]
     Indication: GASTRIC CANCER
     Route: 042
     Dates: start: 20080520, end: 20080520
  8. CISPLATIN [Suspect]
     Route: 042
     Dates: start: 20080617, end: 20080902
  9. RED BLOOD CELLS [Concomitant]
     Route: 042
     Dates: start: 20080901
  10. LOXONIN [Concomitant]
     Indication: ABDOMINAL PAIN
     Route: 048
     Dates: start: 20080902
  11. ANTIBIOTICS [Concomitant]
     Route: 042
     Dates: start: 20080902
  12. OMEPRAZOLE [Concomitant]
     Dosage: DAILY DOSE:20MG
     Route: 048

REACTIONS (1)
  - GASTROINTESTINAL PERFORATION [None]
